FAERS Safety Report 4778367-4 (Version None)
Quarter: 2005Q3

REPORT INFORMATION
  Report Type: 
  Country: None (occurrence: None)
  Receive Date: 20050922
  Receipt Date: 20050912
  Transmission Date: 20060218
  Serious: Yes (Hospitalization)
  Sender: FDA-Public Use
  Company Number: 2005-03390

PATIENT
  Age: 87 Year
  Sex: Female
  Weight: 99.8 kg

DRUGS (9)
  1. OXYTROL [Suspect]
     Indication: URGE INCONTINENCE
     Dosage: 1 PATCH, SINGLE, TRANSDERMAL
     Route: 062
     Dates: start: 20050907, end: 20050909
  2. ARICEPT [Concomitant]
  3. NAMENDA [Concomitant]
  4. COZAAR [Concomitant]
  5. GLYBURDIE (GLIBENCLAMIDE) TABLET [Concomitant]
  6. VERAPAMIL [Concomitant]
  7. LEVOXYL [Concomitant]
  8. MULTIVITE (NICOTINAMIDE, RIBOFLAVIN, RETINOL, ERGOCALCIFEROL) [Concomitant]
  9. ASPIRIN [Concomitant]

REACTIONS (9)
  - ABDOMINAL PAIN [None]
  - APPLICATION SITE DERMATITIS [None]
  - APPLICATION SITE IRRITATION [None]
  - BACK PAIN [None]
  - BLOOD PRESSURE INCREASED [None]
  - FATIGUE [None]
  - FLUSHING [None]
  - HEADACHE [None]
  - SOMNOLENCE [None]
